FAERS Safety Report 9397389 (Version 1)
Quarter: 2013Q3

REPORT INFORMATION
  Report Type: Spontaneous
  Country: BR (occurrence: BR)
  Receive Date: 20130712
  Receipt Date: 20130712
  Transmission Date: 20140515
  Serious: Yes (Other)
  Sender: FDA-Public Use
  Company Number: BR-SANOFI-AVENTIS-2013SA069157

PATIENT
  Sex: Female
  Weight: 58 kg

DRUGS (5)
  1. LANTUS [Suspect]
     Indication: DIABETES MELLITUS
     Route: 058
     Dates: start: 2008
  2. RIVOTRIL [Concomitant]
     Indication: GASTRIC DISORDER
     Route: 048
     Dates: start: 2003
  3. CODEINE PHOSPHATE/PARACETAMOL [Concomitant]
     Indication: PAIN
     Route: 048
     Dates: start: 2012
  4. ESCITALOPRAM [Concomitant]
     Indication: ANTIDEPRESSANT THERAPY
     Route: 048
     Dates: start: 2010
  5. PURAN T4 [Concomitant]
     Indication: THYROID DISORDER
     Route: 048
     Dates: start: 1995

REACTIONS (3)
  - Neoplasm [Not Recovered/Not Resolved]
  - Abdominal distension [Not Recovered/Not Resolved]
  - Pain [Not Recovered/Not Resolved]
